FAERS Safety Report 17510450 (Version 4)
Quarter: 2020Q3

REPORT INFORMATION
  Report Type: Spontaneous
  Country: JP (occurrence: JP)
  Receive Date: 20200306
  Receipt Date: 20200716
  Transmission Date: 20201102
  Serious: Yes (Other)
  Sender: FDA-Public Use
  Company Number: JP-ROCHE-2563830

PATIENT
  Age: 70 Year
  Sex: Male
  Weight: 46 kg

DRUGS (5)
  1. ALOXI [Concomitant]
     Active Substance: PALONOSETRON HYDROCHLORIDE
     Dosage: DOSAGE IS UNCERTAIN.
     Route: 065
     Dates: start: 20191127, end: 20200205
  2. XELODA [Suspect]
     Active Substance: CAPECITABINE
     Indication: COLON CANCER
     Dosage: TWICEA DAY WITH TWO?WEEK INTERVAL
     Route: 048
     Dates: start: 20191127, end: 20200218
  3. DECADRON [Concomitant]
     Active Substance: DEXAMETHASONE
     Dosage: DOSAGE IS UNCERTAIN.
     Route: 048
     Dates: start: 20191128, end: 20200207
  4. DEXART [Concomitant]
     Active Substance: DEXAMETHASONE SODIUM PHOSPHATE
     Dosage: DOSAGE IS UNCERTAIN.
     Route: 065
     Dates: start: 20191127, end: 20200205
  5. ELPLAT [Suspect]
     Active Substance: OXALIPLATIN
     Indication: COLON CANCER
     Route: 041
     Dates: start: 20191127, end: 20200205

REACTIONS (3)
  - Pain in extremity [Not Recovered/Not Resolved]
  - Hyperglycaemia [Recovered/Resolved]
  - Soft tissue necrosis [Recovering/Resolving]

NARRATIVE: CASE EVENT DATE: 20200226
